FAERS Safety Report 13152847 (Version 2)
Quarter: 2017Q1

REPORT INFORMATION
  Report Type: Spontaneous
  Country: US (occurrence: US)
  Receive Date: 20170126
  Receipt Date: 20170308
  Transmission Date: 20170428
  Serious: No
  Sender: FDA-Public Use
  Company Number: US-ASTRAZENECA-2017SE08241

PATIENT
  Age: 798 Month
  Sex: Female
  Weight: 96.6 kg

DRUGS (8)
  1. SYMBICORT [Suspect]
     Active Substance: BUDESONIDE\FORMOTEROL FUMARATE DIHYDRATE
     Indication: CHRONIC OBSTRUCTIVE PULMONARY DISEASE
     Dosage: 160 4.5 MCG, 2 PUFFS TWICE A DAY
     Route: 055
     Dates: start: 20170119
  2. PREDNISONE. [Concomitant]
     Active Substance: PREDNISONE
     Indication: NASAL CONGESTION
     Route: 048
     Dates: start: 20170120
  3. CITALOPRAM [Concomitant]
     Active Substance: CITALOPRAM HYDROBROMIDE
     Indication: DEPRESSION
     Route: 048
  4. FLUTICASONE PROPIONATE. [Concomitant]
     Active Substance: FLUTICASONE PROPIONATE
     Indication: PROPHYLAXIS
     Route: 045
     Dates: start: 201612
  5. PSEUDOEPHEDRINE [Concomitant]
     Active Substance: PSEUDOEPHEDRINE
     Indication: NASAL CONGESTION
     Route: 048
  6. LISINOPRIL. [Suspect]
     Active Substance: LISINOPRIL
     Indication: HYPERTENSION
     Route: 048
  7. FEXOFENADINE [Concomitant]
     Active Substance: FEXOFENADINE\FEXOFENADINE HYDROCHLORIDE
     Indication: HYPERSENSITIVITY
     Route: 048
  8. MONTELUKAST [Concomitant]
     Active Substance: MONTELUKAST SODIUM
     Indication: HYPERSENSITIVITY
     Route: 048

REACTIONS (15)
  - Cough [Unknown]
  - Intentional device misuse [Unknown]
  - Malaise [Unknown]
  - Depression [Unknown]
  - Drug dose omission [Unknown]
  - Nasopharyngitis [Unknown]
  - Dysgeusia [Unknown]
  - Multiple allergies [Unknown]
  - Vomiting [Unknown]
  - Vitamin D deficiency [Unknown]
  - Aphonia [Unknown]
  - Insomnia [Unknown]
  - Upper respiratory tract congestion [Unknown]
  - Chronic obstructive pulmonary disease [Unknown]
  - Eye swelling [Unknown]

NARRATIVE: CASE EVENT DATE: 201610
